FAERS Safety Report 7385763-8 (Version None)
Quarter: 2011Q1

REPORT INFORMATION
  Report Type: 
  Country: None (occurrence: None)
  Receive Date: 20110331
  Receipt Date: 20100224
  Transmission Date: 20110831
  Serious: No
  Sender: FDA-Public Use
  Company Number: US-BAYER-201015800NA

PATIENT
  Sex: Female

DRUGS (1)
  1. MIRENA [Suspect]
     Dosage: 20 ?G/D, CONT

REACTIONS (4)
  - HYPERTENSION [None]
  - MOOD SWINGS [None]
  - DIABETES MELLITUS [None]
  - ABDOMINAL DISTENSION [None]
